FAERS Safety Report 9474861 (Version 3)
Quarter: 2013Q3

REPORT INFORMATION
  Report Type: Report from Study
  Country: BR (occurrence: BR)
  Receive Date: 20130823
  Receipt Date: 20130904
  Transmission Date: 20140515
  Serious: Yes (Death, Other)
  Sender: FDA-Public Use
  Company Number: BR-ROCHE-1085518

PATIENT
  Age: 56 Year
  Sex: Female
  Weight: 64 kg

DRUGS (14)
  1. MABTHERA [Suspect]
     Indication: RHEUMATOID ARTHRITIS
     Dosage: FIRST CYCLE
     Route: 042
     Dates: start: 20100413
  2. MABTHERA [Suspect]
     Dosage: SECOND CYCLE
     Route: 065
     Dates: start: 201102
  3. MABTHERA [Suspect]
     Route: 065
     Dates: start: 201201
  4. MABTHERA [Suspect]
     Route: 065
     Dates: start: 201202
  5. MABTHERA [Suspect]
     Route: 065
     Dates: start: 20100401, end: 20130429
  6. CYCLOSPORINE [Concomitant]
     Indication: RHEUMATOID ARTHRITIS
     Route: 048
     Dates: start: 20120620
  7. DIPYRONE [Concomitant]
     Route: 065
  8. SOLU-MEDROL [Concomitant]
     Route: 065
  9. KETOPROFEN [Concomitant]
  10. TYROSINE [Concomitant]
  11. DEFLACORT [Concomitant]
     Indication: RHEUMATOID ARTHRITIS
     Route: 048
     Dates: start: 20090304
  12. RISEDRONATE [Concomitant]
     Indication: OSTEOPOROSIS
     Route: 048
     Dates: start: 20090304
  13. MELOXICAM [Concomitant]
     Indication: RHEUMATOID ARTHRITIS
     Route: 048
     Dates: start: 20090304
  14. PREGABALIN [Concomitant]
     Indication: NEUROPATHY PERIPHERAL
     Route: 065
     Dates: start: 20100409

REACTIONS (8)
  - Death [Fatal]
  - Pneumonia [Recovered/Resolved]
  - Blood pressure increased [Unknown]
  - Furuncle [Not Recovered/Not Resolved]
  - Pyrexia [Unknown]
  - Abscess [Not Recovered/Not Resolved]
  - Lymphocytosis [Unknown]
  - Speech disorder [Unknown]
